FAERS Safety Report 17836726 (Version 1)
Quarter: 2020Q2

REPORT INFORMATION
  Report Type: Spontaneous
  Country: PE (occurrence: PE)
  Receive Date: 20200528
  Receipt Date: 20200528
  Transmission Date: 20200714
  Serious: Yes (Other)
  Sender: FDA-Public Use
  Company Number: NVSC2020PE146398

PATIENT
  Age: 68 Year
  Sex: Female

DRUGS (3)
  1. HALOPERIDOL. [Concomitant]
     Active Substance: HALOPERIDOL
     Indication: ANXIETY
     Dosage: 5 UNK
     Route: 065
  2. MEMANTINE HYDROCHLORIDE. [Suspect]
     Active Substance: MEMANTINE HYDROCHLORIDE
     Indication: FRONTOTEMPORAL DEMENTIA
     Dosage: 10 MG
     Route: 065
  3. QUETIAPINE. [Suspect]
     Active Substance: QUETIAPINE
     Indication: FRONTOTEMPORAL DEMENTIA
     Dosage: 400 MG
     Route: 065

REACTIONS (22)
  - Irritability [Recovering/Resolving]
  - Memory impairment [Unknown]
  - Speech disorder [Unknown]
  - Apathy [Unknown]
  - Disturbance in attention [Unknown]
  - Cerebral atrophy [Unknown]
  - Impulsive behaviour [Recovering/Resolving]
  - Disorientation [Unknown]
  - Bradykinesia [Unknown]
  - Hyperreflexia [Unknown]
  - Cognitive disorder [Unknown]
  - Visual impairment [Unknown]
  - Hippocampal atrophy [Unknown]
  - Frontotemporal dementia [Unknown]
  - Aggression [Unknown]
  - Impatience [Unknown]
  - Stereotypy [Unknown]
  - Abnormal behaviour [Unknown]
  - Executive dysfunction [Unknown]
  - Product use in unapproved indication [Unknown]
  - Vitamin B12 decreased [Unknown]
  - Amnesia [Unknown]
